FAERS Safety Report 7263808-3 (Version None)
Quarter: 2011Q1

REPORT INFORMATION
  Report Type: 
  Country: None (occurrence: None)
  Receive Date: 20110130
  Receipt Date: 20101026
  Transmission Date: 20110831
  Serious: No
  Sender: FDA-Public Use
  Company Number: US-ABBOTT-10P-163-0682393-00

PATIENT
  Age: 48 Year
  Sex: Female
  Weight: 72.64 kg

DRUGS (7)
  1. PROZAC [Concomitant]
     Indication: ANXIETY
  2. LISINOPRIL [Concomitant]
     Indication: HYPERTENSION
  3. PROZAC [Concomitant]
     Indication: DEPRESSION
  4. HUMIRA [Suspect]
     Dosage: LOT # + EXPIRATION WERE UNAVAILABLE.
     Route: 058
     Dates: end: 20101028
  5. RITALIN [Concomitant]
     Indication: DEPRESSION
  6. RITALIN [Concomitant]
     Indication: ANXIETY
  7. HUMIRA [Suspect]
     Indication: PSORIATIC ARTHROPATHY
     Route: 058
     Dates: start: 20101028

REACTIONS (2)
  - BREAKTHROUGH PAIN [None]
  - INCORRECT DOSE ADMINISTERED [None]
